FAERS Safety Report 10477859 (Version 1)
Quarter: 2014Q3

REPORT INFORMATION
  Report Type: Spontaneous
  Country: US (occurrence: US)
  Receive Date: 20140926
  Receipt Date: 20140926
  Transmission Date: 20150326
  Serious: No
  Sender: FDA-Public Use
  Company Number: US-AMGEN INC.-USASP2014072566

PATIENT
  Age: 49 Year
  Sex: Female

DRUGS (1)
  1. ENBREL [Suspect]
     Active Substance: ETANERCEPT
     Indication: RHEUMATOID ARTHRITIS
     Dosage: 25 MG, 2 TIMES/WK
     Route: 058
     Dates: start: 2009

REACTIONS (8)
  - Sneezing [Unknown]
  - Nasal discomfort [Unknown]
  - Nasal congestion [Unknown]
  - Eye pruritus [Unknown]
  - Hypersensitivity [Unknown]
  - Dehydration [Unknown]
  - Oral pruritus [Unknown]
  - Pruritus [Unknown]
